FAERS Safety Report 6094850-6 (Version None)
Quarter: 2009Q1

REPORT INFORMATION
  Report Type: 
  Country: None (occurrence: None)
  Receive Date: 20090227
  Receipt Date: 20090219
  Transmission Date: 20090719
  Serious: Yes (Hospitalization)
  Sender: FDA-Public Use
  Company Number: ES-JNJFOC-20090206084

PATIENT
  Age: 64 Year
  Sex: Male

DRUGS (9)
  1. DURAGESIC-100 [Suspect]
     Indication: ANALGESIA
     Route: 062
  2. ATROVENT [Suspect]
     Indication: RESPIRATORY DISORDER
     Route: 055
  3. DORMICUM [Suspect]
     Indication: SLEEP DISORDER
     Route: 048
  4. ENANTYUM [Suspect]
     Indication: ANALGESIA
     Route: 048
  5. ESERTIA [Suspect]
     Indication: DEPRESSION
     Route: 048
  6. MS CONTIN [Suspect]
     Indication: ANALGESIA
     Route: 048
  7. PRIMPERAN [Suspect]
     Indication: DRUG USE FOR UNKNOWN INDICATION
     Route: 048
  8. ROCEPHIN KIT [Suspect]
     Indication: ANTIBIOTIC THERAPY
     Route: 030
  9. TRANSTEC [Suspect]
     Indication: DRUG USE FOR UNKNOWN INDICATION
     Route: 062

REACTIONS (2)
  - HEPATIC ENCEPHALOPATHY [None]
  - HEPATITIS [None]
